FAERS Safety Report 8016024-1 (Version None)
Quarter: 2011Q4

REPORT INFORMATION
  Report Type: 
  Country: None (occurrence: None)
  Receive Date: 20111230
  Receipt Date: 20111219
  Transmission Date: 20120403
  Serious: Yes (Hospitalization)
  Sender: FDA-Public Use
  Company Number: GB-JNJFOC-20111208387

PATIENT
  Age: 73 Year
  Sex: Male
  Weight: 82 kg

DRUGS (7)
  1. PROSTEP [Concomitant]
     Indication: PROSTATE CANCER
     Route: 030
  2. SIMVASTATIN [Concomitant]
     Indication: BLOOD CHOLESTEROL INCREASED
     Route: 048
  3. PREDNISOLONE [Concomitant]
     Indication: PRODUCT USED FOR UNKNOWN INDICATION
     Route: 065
  4. IRBESARTAN [Concomitant]
     Indication: HYPERTENSION
     Route: 048
     Dates: end: 20111102
  5. ZYTIGA [Suspect]
     Indication: PROSTATE CANCER METASTATIC
     Route: 048
     Dates: start: 20111005, end: 20111011
  6. BISOPROLOL [Concomitant]
     Indication: HYPERTENSION
     Route: 048
  7. PREDNISOLONE [Concomitant]
     Route: 065

REACTIONS (5)
  - BLOOD UREA INCREASED [None]
  - OEDEMA PERIPHERAL [None]
  - BLOOD CREATININE INCREASED [None]
  - HYPOTENSION [None]
  - HYPOKALAEMIA [None]
